FAERS Safety Report 5202234-5 (Version None)
Quarter: 2007Q1

REPORT INFORMATION
  Report Type: 
  Country: None (occurrence: None)
  Receive Date: 20070109
  Receipt Date: 20070109
  Transmission Date: 20070707
  Serious: Yes (Hospitalization)
  Sender: FDA-Public Use
  Company Number: AT-JNJFOC-20061206948

PATIENT
  Sex: Female
  Weight: 56 kg

DRUGS (10)
  1. DURAGESIC-100 [Suspect]
     Route: 062
  2. DURAGESIC-100 [Suspect]
     Route: 062
  3. DURAGESIC-100 [Suspect]
     Route: 062
  4. DURAGESIC-100 [Suspect]
     Route: 062
  5. DURAGESIC-100 [Suspect]
     Indication: PAIN
     Route: 062
  6. MORICOL [Concomitant]
     Route: 065
  7. ANTIHYPERTENSIVE MEDICATION [Concomitant]
     Route: 065
  8. SERACTIL [Concomitant]
     Route: 065
  9. NOVALGIN [Concomitant]
     Route: 065
  10. DIURETICS [Concomitant]
     Route: 065

REACTIONS (2)
  - INTESTINAL OBSTRUCTION [None]
  - SPINAL FRACTURE [None]
